FAERS Safety Report 5781927-5 (Version None)
Quarter: 2008Q2

REPORT INFORMATION
  Report Type: 
  Country: None (occurrence: None)
  Receive Date: 20080623
  Receipt Date: 20080611
  Transmission Date: 20081010
  Serious: Yes (Hospitalization)
  Sender: FDA-Public Use
  Company Number: B0524862A

PATIENT
  Age: 69 Year
  Sex: Male

DRUGS (8)
  1. VALACYCLOVIR HCL [Suspect]
     Indication: HERPES ZOSTER
     Dosage: 1000MG THREE TIMES PER DAY
     Route: 048
     Dates: start: 20080414, end: 20080418
  2. ACYCLOVIR [Suspect]
     Dosage: 950MG THREE TIMES PER DAY
     Route: 042
     Dates: start: 20080418, end: 20080421
  3. CHONDROSULF [Suspect]
     Dosage: 400MG THREE TIMES PER DAY
     Route: 048
     Dates: end: 20080421
  4. ORBENINE [Suspect]
     Dosage: 1000MG TWICE PER DAY
     Route: 048
     Dates: start: 20080414, end: 20080418
  5. VALSARTAN AND HYDROCHLOROTHIAZIDE [Concomitant]
     Dosage: 160MG PER DAY
     Route: 048
     Dates: end: 20080422
  6. NOVONORM [Concomitant]
     Dosage: 3MG THREE TIMES PER DAY
     Route: 048
     Dates: end: 20080420
  7. PYOSTACINE [Concomitant]
     Dosage: 1000MG THREE TIMES PER DAY
     Route: 048
     Dates: start: 20080418, end: 20080424
  8. TOBREX [Concomitant]
     Route: 047
     Dates: start: 20080414, end: 20080424

REACTIONS (10)
  - AMNESIA [None]
  - CONFUSIONAL STATE [None]
  - GRAND MAL CONVULSION [None]
  - HERPES ZOSTER [None]
  - LOSS OF CONSCIOUSNESS [None]
  - MALAISE [None]
  - RENAL FAILURE ACUTE [None]
  - RENAL FUNCTION TEST ABNORMAL [None]
  - RESPIRATORY DISORDER [None]
  - TACHYCARDIA [None]
